FAERS Safety Report 9786232 (Version 2)
Quarter: 2014Q1

REPORT INFORMATION
  Report Type: Report from Study
  Country: US (occurrence: US)
  Receive Date: 20131227
  Receipt Date: 20140121
  Transmission Date: 20141002
  Serious: Yes (Death)
  Sender: FDA-Public Use
  Company Number: US-US-EMD SERONO, INC.-7259677

PATIENT
  Sex: Female

DRUGS (1)
  1. SAIZEN [(SOMATROPIN (RDNA ORIGIN) FOR INJECTION)] [Suspect]
     Indication: HYPOPITUITARISM
     Dates: start: 20120804

REACTIONS (5)
  - Gastroenteritis [Fatal]
  - Hypoglycaemia [Fatal]
  - Brain oedema [Fatal]
  - Brain herniation [Fatal]
  - Aspiration [Fatal]
